FAERS Safety Report 6490297-9 (Version None)
Quarter: 2009Q4

REPORT INFORMATION
  Report Type: 
  Country: None (occurrence: None)
  Receive Date: 20091211
  Receipt Date: 20091130
  Transmission Date: 20100525
  Serious: Yes (Other)
  Sender: FDA-Public Use
  Company Number: US-KINGPHARMUSA00001-K200901419

PATIENT
  Age: 74 Year
  Sex: Male
  Weight: 71.655 kg

DRUGS (3)
  1. FLECTOR [Suspect]
     Indication: NECK PAIN
     Dosage: 1 PATCH, SINGLE
     Route: 061
     Dates: start: 20091111, end: 20091112
  2. LORTAB [Concomitant]
     Indication: NECK PAIN
     Dosage: UNK
  3. PAXIL [Concomitant]
     Indication: DEPRESSION
     Dosage: 10 MG, QD

REACTIONS (11)
  - BALANCE DISORDER [None]
  - BLOOD PRESSURE DECREASED [None]
  - CEREBROVASCULAR ACCIDENT [None]
  - DIARRHOEA [None]
  - DIZZINESS [None]
  - DRY MOUTH [None]
  - GAIT DISTURBANCE [None]
  - MALAISE [None]
  - NAUSEA [None]
  - VISUAL IMPAIRMENT [None]
  - VOMITING [None]
